FAERS Safety Report 7313472-X (Version None)
Quarter: 2011Q1

REPORT INFORMATION
  Report Type: 
  Country: None (occurrence: None)
  Receive Date: 20110225
  Receipt Date: 20110119
  Transmission Date: 20110831
  Serious: Yes (Hospitalization)
  Sender: FDA-Public Use
  Company Number: US-PFIZER INC-2010172516

PATIENT
  Sex: Female
  Weight: 48.5 kg

DRUGS (8)
  1. OXYGEN [Concomitant]
     Dosage: UNK
  2. ALBUTEROL [Concomitant]
     Dosage: UNK
  3. ADVAIR DISKUS 100/50 [Concomitant]
     Dosage: UNK
  4. MONTELUKAST [Concomitant]
     Dosage: UNK
  5. ZOLOFT [Concomitant]
     Indication: DEPRESSION
     Dosage: UNK
  6. CHANTIX [Suspect]
     Indication: SMOKING CESSATION THERAPY
     Dosage: 1 MG, 2X/DAY
     Route: 048
     Dates: start: 20100318, end: 20100401
  7. AVELOX [Suspect]
     Dosage: 400 MG, UNK
  8. SPIRIVA [Concomitant]
     Dosage: UNK

REACTIONS (3)
  - SKIN CHAPPED [None]
  - SWELLING [None]
  - HYPERSENSITIVITY [None]
